APPROVED DRUG PRODUCT: LOPERAMIDE HYDROCHLORIDE
Active Ingredient: LOPERAMIDE HYDROCHLORIDE
Strength: 1MG/5ML
Dosage Form/Route: SOLUTION;ORAL
Application: A073079 | Product #001
Applicant: ALLIED PHARMA INC
Approved: Apr 30, 1992 | RLD: No | RS: No | Type: DISCN